FAERS Safety Report 9645751 (Version 3)
Quarter: 2013Q4

REPORT INFORMATION
  Report Type: Report from Study
  Country: IT (occurrence: IT)
  Receive Date: 20131025
  Receipt Date: 20131202
  Transmission Date: 20140711
  Serious: Yes (Life-Threatening)
  Sender: FDA-Public Use
  Company Number: IT-TEVA-440183USA

PATIENT
  Age: 60 Year
  Sex: Female
  Weight: 60 kg

DRUGS (8)
  1. BENDAMUSTINE [Suspect]
     Indication: B-CELL LYMPHOMA
     Dosage: 600 MILLIGRAM DAILY;
     Dates: start: 20131003, end: 20131004
  2. VEPESID [Suspect]
     Indication: B-CELL LYMPHOMA
     Dosage: 1200 MILLIGRAM DAILY;
     Dates: start: 20131005, end: 20131008
  3. MELPHALAN [Suspect]
     Indication: B-CELL LYMPHOMA
     Dosage: 220 MILLIGRAM DAILY;
     Dates: start: 201310, end: 20131009
  4. ARA-C [Suspect]
     Indication: B-CELL LYMPHOMA
     Dosage: 2400 MILLIGRAM DAILY;
     Dates: start: 20131005, end: 20131008
  5. ANTRA [Concomitant]
     Indication: PROPHYLAXIS
     Dates: start: 20131003
  6. FLUCANOL [Concomitant]
     Indication: PROPHYLAXIS
     Dates: start: 20131003
  7. CETRIAX [Concomitant]
     Indication: PROPHYLAXIS
     Dates: start: 20131003
  8. CLORFENAMINA [Concomitant]
     Indication: PROPHYLAXIS
     Dates: start: 20131003

REACTIONS (2)
  - Nephropathy toxic [Recovered/Resolved]
  - Renal failure acute [Recovered/Resolved]
